FAERS Safety Report 4669992-X (Version None)
Quarter: 2005Q2

REPORT INFORMATION
  Report Type: 
  Country: None (occurrence: None)
  Receive Date: 20050520
  Receipt Date: 20050511
  Transmission Date: 20051028
  Serious: Yes (Hospitalization, Other)
  Sender: FDA-Public Use
  Company Number: USA-2005-0020233

PATIENT
  Age: 41 Year
  Sex: Male

DRUGS (2)
  1. OXYCONTIN [Suspect]
     Dosage: 80 MG, SEE TEXT,
  2. PERCOCET [Suspect]
     Dosage: SEE TEXT,

REACTIONS (5)
  - DEPENDENCE [None]
  - DRUG WITHDRAWAL SYNDROME [None]
  - HALLUCINATION, AUDITORY [None]
  - INADEQUATE ANALGESIA [None]
  - PSYCHOTIC DISORDER [None]
